FAERS Safety Report 15367091 (Version 1)
Quarter: 2018Q3

REPORT INFORMATION
  Report Type: Spontaneous
  Country: US (occurrence: US)
  Receive Date: 20180910
  Receipt Date: 20180910
  Transmission Date: 20181010
  Serious: Yes (Other)
  Sender: FDA-Public Use
  Company Number: None

PATIENT
  Age: 73 Year
  Sex: Female

DRUGS (3)
  1. BALI KRATOM [Suspect]
     Active Substance: MITRAGYNINE\HERBALS
  2. DIFLUCAN [Suspect]
     Active Substance: FLUCONAZOLE
  3. NYSTATIN. [Suspect]
     Active Substance: NYSTATIN

REACTIONS (3)
  - Bladder disorder [None]
  - Culture urine positive [None]
  - Klebsiella test positive [None]

NARRATIVE: CASE EVENT DATE: 20180801
